FAERS Safety Report 7397438-X (Version None)
Quarter: 2011Q2

REPORT INFORMATION
  Report Type: 
  Country: None (occurrence: None)
  Receive Date: 20110406
  Receipt Date: 20110331
  Transmission Date: 20111010
  Serious: No
  Sender: FDA-Public Use
  Company Number: US-PFIZER INC-2011020991

PATIENT
  Sex: Female
  Weight: 58.957 kg

DRUGS (2)
  1. CYMBALTA [Concomitant]
     Indication: DEPRESSION
     Dosage: UNK
  2. GEODON [Suspect]
     Indication: BIPOLAR DISORDER
     Dosage: 20 MG, 1X/DAY
     Route: 048
     Dates: start: 20110114

REACTIONS (2)
  - TREMOR [None]
  - EATING DISORDER [None]
